FAERS Safety Report 7376012-5 (Version None)
Quarter: 2011Q1

REPORT INFORMATION
  Report Type: 
  Country: None (occurrence: None)
  Receive Date: 20110325
  Receipt Date: 20110321
  Transmission Date: 20110831
  Serious: Yes (Death, Other)
  Sender: FDA-Public Use
  Company Number: PHHY2010US42800

PATIENT
  Sex: Female

DRUGS (1)
  1. SANDOSTATIN LAR [Suspect]

REACTIONS (6)
  - DEATH [None]
  - HYPERBILIRUBINAEMIA [None]
  - NAUSEA [None]
  - CLAUSTROPHOBIA [None]
  - HEPATIC ENZYME INCREASED [None]
  - CHROMATURIA [None]
